FAERS Safety Report 20569582 (Version 2)
Quarter: 2022Q2

REPORT INFORMATION
  Report Type: Report from Study
  Country: JP (occurrence: JP)
  Receive Date: 20220309
  Receipt Date: 20220415
  Transmission Date: 20220721
  Serious: Yes (Death, Hospitalization)
  Sender: FDA-Public Use
  Company Number: JP-SA-2022SA077285

PATIENT
  Age: 79 Year
  Sex: Female

DRUGS (5)
  1. SARILUMAB [Suspect]
     Active Substance: SARILUMAB
     Indication: Rheumatoid arthritis
     Dosage: 200 MG, QOW
     Route: 058
     Dates: start: 20210401, end: 20210727
  2. RHEUMATREX [Concomitant]
     Active Substance: METHOTREXATE SODIUM
     Indication: Rheumatoid arthritis
     Dosage: 4 MG, BIW
     Route: 048
     Dates: start: 20210204, end: 20210924
  3. CELECOXIB [Concomitant]
     Active Substance: CELECOXIB
     Indication: Pain
     Dosage: 100 MG, QD
     Route: 048
     Dates: start: 20210318, end: 20210727
  4. REBAMIPIDE [Concomitant]
     Active Substance: REBAMIPIDE
     Indication: Gastric disorder
     Dosage: 100 MG, QD
     Route: 048
     Dates: start: 20210318, end: 20210727
  5. FOLIC ACID [Concomitant]
     Active Substance: FOLIC ACID
     Indication: Prophylaxis
     Dosage: 5 MG, QW
     Route: 048
     Dates: start: 20081003, end: 20210924

REACTIONS (7)
  - Colon cancer [Fatal]
  - Dyspnoea [Unknown]
  - Metastases to liver [Unknown]
  - Back pain [Unknown]
  - Abdominal pain [Unknown]
  - Metastases to bone [Unknown]
  - Spinal compression fracture [Unknown]

NARRATIVE: CASE EVENT DATE: 20210701
